FAERS Safety Report 9850737 (Version 2)
Quarter: 2014Q1

REPORT INFORMATION
  Report Type: Spontaneous
  Country: IT (occurrence: IT)
  Receive Date: 20140128
  Receipt Date: 20140219
  Transmission Date: 20141002
  Serious: Yes (Other)
  Sender: FDA-Public Use
  Company Number: IT-PFIZER INC-2014022747

PATIENT
  Age: 67 Year
  Sex: Male

DRUGS (8)
  1. CARDURA [Suspect]
     Indication: HYPERTENSION
     Dosage: 2 MG TOTAL
     Route: 048
     Dates: start: 20140102, end: 20140102
  2. VASEXTEN [Suspect]
     Indication: HYPERTENSION
     Dosage: 10 MG, DAILY
     Route: 048
     Dates: start: 20110101
  3. LOSAPREX [Suspect]
     Indication: CARDIAC DISORDER
     Dosage: 50 MG, DAILY
     Route: 048
     Dates: start: 20111220
  4. SELOKEN [Suspect]
     Indication: HYPERTENSION
     Dosage: 100 MG, DAILY
     Route: 048
     Dates: start: 20110101
  5. CARDIOASPIRIN [Concomitant]
     Dosage: UNK
  6. PROCORALAN [Concomitant]
     Dosage: UNK
  7. ZYLORIC [Concomitant]
     Dosage: UNK
  8. ARMOLIPID PLUS [Concomitant]
     Dosage: UNK

REACTIONS (2)
  - Loss of consciousness [Recovered/Resolved]
  - Fall [Recovered/Resolved]
